FAERS Safety Report 17264702 (Version 2)
Quarter: 2020Q1

REPORT INFORMATION
  Report Type: Spontaneous
  Country: CZ (occurrence: CZ)
  Receive Date: 20200113
  Receipt Date: 20200207
  Transmission Date: 20200409
  Serious: Yes (Other)
  Sender: FDA-Public Use
  Company Number: CZ-PFIZER INC-2020010414

PATIENT
  Sex: Male

DRUGS (13)
  1. AMIODARONE [Concomitant]
     Active Substance: AMIODARONE
     Dosage: UNK
     Route: 065
  2. FOLATE [Concomitant]
     Active Substance: FOLATE SODIUM
     Dosage: 1 DF, 1X/DAY
     Route: 065
  3. FURON [FUROSEMIDE SODIUM] [Suspect]
     Active Substance: FUROSEMIDE SODIUM
     Dosage: 40 MG, CYCLIC (1X/EVERY TWO WEEKS)
     Route: 065
  4. FURON [FUROSEMIDE SODIUM] [Suspect]
     Active Substance: FUROSEMIDE SODIUM
     Dosage: 0.5 DF, 1X/DAY
     Route: 065
     Dates: start: 20170515
  5. BISOPROLOL [Concomitant]
     Active Substance: BISOPROLOL
     Dosage: UNK
     Route: 065
  6. SPIRONOLACTONE. [Concomitant]
     Active Substance: SPIRONOLACTONE
     Dosage: 50 MG, 1X/DAY (DISCONTINUED)
     Route: 065
  7. TREXAN (METHOTREXATE) [Suspect]
     Active Substance: METHOTREXATE SODIUM
     Dosage: 2 DF, WEEKLY
     Route: 065
  8. ENTRESTO [Suspect]
     Active Substance: SACUBITRIL\VALSARTAN
     Dosage: 2 DF, 1X/DAY (97/103MG)
     Route: 065
     Dates: start: 20180115
  9. SORTIS [Suspect]
     Active Substance: ATORVASTATIN
     Dosage: 1 DF, 1X/DAY
     Route: 065
  10. ENTRESTO [Suspect]
     Active Substance: SACUBITRIL\VALSARTAN
     Indication: CARDIAC FAILURE
     Dosage: 2 DF, 1X/DAY (49MG/51MG)
     Route: 065
     Dates: start: 20171214
  11. HYDROXYCHLOROQUINE [Concomitant]
     Active Substance: HYDROXYCHLOROQUINE
     Dosage: 1 DF, 1X/DAY
     Route: 065
  12. SPIRONOLACTONE. [Concomitant]
     Active Substance: SPIRONOLACTONE
     Dosage: 50 MG, 1X/DAY
     Route: 065
  13. APIXABAN [Concomitant]
     Active Substance: APIXABAN
     Dosage: 5 MG, 2X/DAY
     Route: 065

REACTIONS (3)
  - Left ventricular dysfunction [Unknown]
  - Left ventricular dilatation [Unknown]
  - Mitral valve incompetence [Not Recovered/Not Resolved]

NARRATIVE: CASE EVENT DATE: 20180115
